FAERS Safety Report 24408197 (Version 1)
Quarter: 2024Q4

REPORT INFORMATION
  Report Type: Spontaneous
  Country: ZA (occurrence: ZA)
  Receive Date: 20241007
  Receipt Date: 20241007
  Transmission Date: 20250115
  Serious: Yes (Other)
  Sender: PFIZER
  Company Number: ZA-PFIZER INC-PV202400129303

PATIENT
  Age: 44 Year
  Sex: Female

DRUGS (2)
  1. METHOTREXATE SODIUM [Suspect]
     Active Substance: METHOTREXATE SODIUM
     Indication: Still^s disease
  2. ACTEMRA [Suspect]
     Active Substance: TOCILIZUMAB
     Indication: Still^s disease

REACTIONS (11)
  - Polyarthritis [Unknown]
  - Drug ineffective for unapproved indication [Unknown]
  - Off label use [Unknown]
  - Pyrexia [Unknown]
  - Weight decreased [Unknown]
  - Rash [Unknown]
  - Mouth ulceration [Unknown]
  - C-reactive protein increased [Unknown]
  - Red blood cell sedimentation rate [Unknown]
  - Serum ferritin increased [Unknown]
  - Hypertransaminasaemia [Unknown]
